FAERS Safety Report 9857048 (Version 3)
Quarter: 2016Q3

REPORT INFORMATION
  Report Type: Spontaneous
  Country: ET (occurrence: ET)
  Receive Date: 20140130
  Receipt Date: 20160722
  Transmission Date: 20161109
  Serious: Yes (Death, Other)
  Sender: FDA-Public Use
  Company Number: ET-PFIZER INC-2014025394

PATIENT
  Age: 30 Year
  Sex: Female

DRUGS (1)
  1. ZITHROMAX [Suspect]
     Active Substance: AZITHROMYCIN DIHYDRATE
     Indication: TRACHOMA
     Dosage: 1000 MG (4X250MG TABLETS) , SINGLE
     Route: 048
     Dates: start: 20140116, end: 20140116

REACTIONS (1)
  - Death [Fatal]

NARRATIVE: CASE EVENT DATE: 20140120
